FAERS Safety Report 10310095 (Version 1)
Quarter: 2014Q3

REPORT INFORMATION
  Report Type: Spontaneous
  Country: US (occurrence: None)
  Receive Date: 20140715
  Receipt Date: 20140715
  Transmission Date: 20150326
  Serious: Yes (Disabling)
  Sender: FDA-Public Use
  Company Number: None

PATIENT
  Age: 73 Year
  Sex: Female
  Weight: 90.72 kg

DRUGS (13)
  1. PROAIR INHALER [Concomitant]
  2. FISH OIL [Concomitant]
     Active Substance: FISH OIL
  3. MAGNESIUM [Concomitant]
     Active Substance: MAGNESIUM
  4. RED CLOVER [Concomitant]
     Active Substance: RED CLOVER
  5. INOSITAL [Concomitant]
  6. VIT. D3 [Concomitant]
  7. SINGULAIR [Concomitant]
     Active Substance: MONTELUKAST SODIUM
  8. LISINOPRIL. [Concomitant]
     Active Substance: LISINOPRIL
  9. INVOKANA [Suspect]
     Active Substance: CANAGLIFLOZIN
     Indication: BLOOD GLUCOSE ABNORMAL
     Dosage: 1 A DAY IN THE MORNING, BY MOUTH
     Route: 048
     Dates: start: 20130827, end: 20131015
  10. VESICARE [Concomitant]
     Active Substance: SOLIFENACIN SUCCINATE
  11. LANTUS [Concomitant]
     Active Substance: INSULIN GLARGINE
  12. METFORMIN [Concomitant]
     Active Substance: METFORMIN HYDROCHLORIDE
  13. LATANOPROST. [Concomitant]
     Active Substance: LATANOPROST

REACTIONS (4)
  - Weight decreased [None]
  - Renal cyst [None]
  - Nephrolithiasis [None]
  - Diarrhoea [None]

NARRATIVE: CASE EVENT DATE: 20130904
